FAERS Safety Report 7081946-5 (Version None)
Quarter: 2010Q4

REPORT INFORMATION
  Report Type: 
  Country: None (occurrence: None)
  Receive Date: 20101103
  Receipt Date: 20101028
  Transmission Date: 20110411
  Serious: Yes (Hospitalization, Other)
  Sender: FDA-Public Use
  Company Number: JP-PFIZER INC-2009189341

PATIENT
  Age: 67 Year
  Sex: Male
  Weight: 59.7 kg

DRUGS (7)
  1. SUNITINIB MALATE [Suspect]
     Indication: GASTROINTESTINAL STROMAL TUMOUR
     Dosage: 50 MG, 1X/DAY
     Route: 048
     Dates: start: 20081030
  2. ZANTAC [Concomitant]
     Dosage: UNK
     Route: 048
     Dates: end: 20081219
  3. ECABET MONOSODIUM [Concomitant]
     Dosage: UNK
     Route: 048
  4. CATAPRES [Concomitant]
     Dosage: UNK
     Route: 048
  5. ALDACTONE [Concomitant]
     Dosage: UNK
     Route: 048
  6. DECADRON [Concomitant]
     Dosage: UNK
     Route: 048
  7. AMLODIPINE [Concomitant]
     Dosage: UNK
     Route: 048

REACTIONS (3)
  - ANAEMIA [None]
  - INTERSTITIAL LUNG DISEASE [None]
  - RENAL FAILURE [None]
